FAERS Safety Report 9400682 (Version 2)
Quarter: 2013Q3

REPORT INFORMATION
  Report Type: Spontaneous
  Country: JP (occurrence: JP)
  Receive Date: 20130715
  Receipt Date: 20130717
  Transmission Date: 20140515
  Serious: Yes (Hospitalization)
  Sender: FDA-Public Use
  Company Number: JP-TEVA-416789ISR

PATIENT
  Age: 78 Year
  Sex: Male

DRUGS (4)
  1. VERAPAMIL [Suspect]
     Indication: HYPERTENSION
     Route: 065
     Dates: start: 2008
  2. PREDNISOLONE [Suspect]
     Indication: AMYOTROPHIC LATERAL SCLEROSIS
     Route: 065
     Dates: start: 2009
  3. PREDNISOLONE [Suspect]
     Indication: AMYOTROPHIC LATERAL SCLEROSIS
     Route: 065
     Dates: start: 2009
  4. AZELNIDIPINE [Suspect]
     Indication: HYPERTENSION
     Route: 048
     Dates: start: 2008

REACTIONS (2)
  - Drug reaction with eosinophilia and systemic symptoms [Recovering/Resolving]
  - Human herpesvirus 6 infection [Recovering/Resolving]
